FAERS Safety Report 8696125 (Version 2)
Quarter: 2013Q4

REPORT INFORMATION
  Report Type: Spontaneous
  Country: US (occurrence: US)
  Receive Date: 20120801
  Receipt Date: 20131031
  Transmission Date: 20140711
  Serious: No
  Sender: FDA-Public Use
  Company Number: US-009507513-2012SP032071

PATIENT
  Age: 28 Year
  Sex: Female
  Weight: 190.97 kg

DRUGS (1)
  1. IMPLANON [Suspect]
     Indication: CONTRACEPTION
     Dosage: UNK DF, UNK
     Route: 059
     Dates: start: 20081212, end: 20120608

REACTIONS (2)
  - Incorrect drug administration duration [Recovered/Resolved]
  - Device breakage [Recovered/Resolved]
